FAERS Safety Report 21024302 (Version 4)
Quarter: 2023Q2

REPORT INFORMATION
  Report Type: Report from Study
  Country: US (occurrence: US)
  Receive Date: 20220629
  Receipt Date: 20230513
  Transmission Date: 20230722
  Serious: No
  Sender: FDA-Public Use
  Company Number: US-NOVARTISTESTPH-NVSC2022US148925

PATIENT
  Sex: Female

DRUGS (1)
  1. KISQALI [Suspect]
     Active Substance: RIBOCICLIB
     Indication: Breast cancer
     Dosage: 600 MG, QD
     Route: 048
     Dates: start: 202206

REACTIONS (7)
  - Therapeutic response unexpected [Unknown]
  - Tumour marker decreased [Unknown]
  - Cough [Unknown]
  - Rash macular [Unknown]
  - Fatigue [Unknown]
  - Alopecia [Unknown]
  - Amnesia [Unknown]
